FAERS Safety Report 17282277 (Version 3)
Quarter: 2020Q1

REPORT INFORMATION
  Report Type: Spontaneous
  Country: FR (occurrence: FR)
  Receive Date: 20200117
  Receipt Date: 20200220
  Transmission Date: 20200409
  Serious: Yes (Other)
  Sender: FDA-Public Use
  Company Number: FR-AXELLIA-002931

PATIENT
  Age: 65 Year
  Sex: Female
  Weight: 74.8 kg

DRUGS (14)
  1. ESIDREX [Concomitant]
     Active Substance: HYDROCHLOROTHIAZIDE
  2. LEVOTHYROX [Concomitant]
     Active Substance: LEVOTHYROXINE
  3. VANCOMYCIN [Suspect]
     Active Substance: VANCOMYCIN
     Indication: DEVICE RELATED INFECTION
     Route: 042
     Dates: start: 20191122, end: 20191212
  4. RIFAMPICIN [Suspect]
     Active Substance: RIFAMPIN
     Indication: DEVICE RELATED INFECTION
     Route: 048
     Dates: start: 20191212, end: 20191217
  5. TAHOR [Concomitant]
     Active Substance: ATORVASTATIN CALCIUM
  6. FLUOXETINE/FLUOXETINE HYDROCHLORIDE [Concomitant]
     Active Substance: FLUOXETINE HYDROCHLORIDE
  7. PANTOPRAZOLE [Concomitant]
     Active Substance: PANTOPRAZOLE
  8. ESTRADIOL. [Concomitant]
     Active Substance: ESTRADIOL
  9. AMLODIPINE [Concomitant]
     Active Substance: AMLODIPINE BESYLATE
  10. INORIAL [Concomitant]
     Active Substance: BILASTINE
     Dosage: STRENGTH-20 MG
  11. BISOPROLOL [Concomitant]
     Active Substance: BISOPROLOL
  12. ETORICOXIB. [Concomitant]
     Active Substance: ETORICOXIB
  13. VANCOMYCIN [Suspect]
     Active Substance: VANCOMYCIN
     Indication: DEVICE RELATED INFECTION
     Route: 042
     Dates: start: 20191218, end: 20191219
  14. CUBICIN [Suspect]
     Active Substance: DAPTOMYCIN
     Indication: DEVICE RELATED INFECTION
     Route: 042
     Dates: start: 20191212, end: 20191217

REACTIONS (5)
  - Renal failure [Recovering/Resolving]
  - Eosinophilia [Recovered/Resolved]
  - Hepatic failure [Recovering/Resolving]
  - Rash [Recovered/Resolved]
  - Drug reaction with eosinophilia and systemic symptoms [Recovering/Resolving]

NARRATIVE: CASE EVENT DATE: 20191217
